FAERS Safety Report 9238022 (Version 1)
Quarter: 2013Q1

REPORT INFORMATION
  Report Type: Spontaneous
  Country: US (occurrence: None)
  Receive Date: 20121107
  Receipt Date: 20121107
  Transmission Date: 20140127
  Serious: No
  Sender: FDA-Public Use
  Company Number: 2012HGS-003917

PATIENT
  Age: 48 Year
  Sex: Female

DRUGS (3)
  1. BENLYSTA [Suspect]
     Route: 041
     Dates: start: 20120501
  2. PREDNISONE (PREDNISONE) (PREDNISONE) [Concomitant]
  3. VICODIN (VICODIN) (PARACETAMOL, HYDROCODONE BITARTRATE) [Concomitant]

REACTIONS (3)
  - Sinusitis [None]
  - Productive cough [None]
  - Sinus headache [None]
